FAERS Safety Report 7346052-0 (Version None)
Quarter: 2011Q1

REPORT INFORMATION
  Report Type: 
  Country: None (occurrence: None)
  Receive Date: 20110311
  Receipt Date: 20110302
  Transmission Date: 20110831
  Serious: No
  Sender: FDA-Public Use
  Company Number: US-BIOGENIDEC-2011BI008380

PATIENT
  Age: 48 Year
  Sex: Female

DRUGS (1)
  1. AVONEX [Suspect]
     Indication: MULTIPLE SCLEROSIS
     Route: 030
     Dates: start: 20041212

REACTIONS (5)
  - PARAESTHESIA [None]
  - MEMORY IMPAIRMENT [None]
  - HYPOAESTHESIA [None]
  - URINARY RETENTION [None]
  - CONSTIPATION [None]
